FAERS Safety Report 11179721 (Version 2)
Quarter: 2015Q2

REPORT INFORMATION
  Report Type: Spontaneous
  Country: US (occurrence: None)
  Receive Date: 20150609
  Receipt Date: 20150617
  Transmission Date: 20150821
  Serious: Yes (Hospitalization)
  Sender: FDA-Public Use
  Company Number: AMAG201500500

PATIENT
  Sex: Female

DRUGS (1)
  1. FERAHEME [Suspect]
     Active Substance: FERUMOXYTOL NON-STOICHIOMETRIC MAGNETITE
     Indication: IRON DEFICIENCY ANAEMIA
     Dosage: IV PUSH
     Route: 042
     Dates: start: 201404, end: 201404

REACTIONS (3)
  - Cardiac disorder [None]
  - Anaphylactic reaction [None]
  - Myocardial infarction [None]

NARRATIVE: CASE EVENT DATE: 201404
